FAERS Safety Report 11193012 (Version 1)
Quarter: 2015Q2

REPORT INFORMATION
  Report Type: Spontaneous
  Country: DE (occurrence: DE)
  Receive Date: 20150616
  Receipt Date: 20150616
  Transmission Date: 20150821
  Serious: Yes (Life-Threatening, Other)
  Sender: FDA-Public Use
  Company Number: DE-INCYTE CORPORATION-2015IN002672

PATIENT
  Sex: Male

DRUGS (5)
  1. TREOSULFAN [Concomitant]
     Active Substance: TREOSULFAN
     Dosage: 63 MG, (30 MG PER SQM), QD FOR 5 DAYS
     Route: 065
  2. JAKAFI [Suspect]
     Active Substance: RUXOLITINIB
     Indication: MYELOFIBROSIS
     Route: 065
     Dates: start: 201404
  3. TREOSULFAN [Concomitant]
     Active Substance: TREOSULFAN
     Indication: CHEMOTHERAPY
     Dosage: UNK
     Route: 065
  4. CICLOSPORIN [Suspect]
     Active Substance: CYCLOSPORINE
     Indication: STEM CELL TRANSPLANT
     Route: 065
  5. FLUDARABINE [Concomitant]
     Active Substance: FLUDARABINE PHOSPHATE
     Indication: CHEMOTHERAPY
     Route: 065

REACTIONS (11)
  - Haematoma [Unknown]
  - Sepsis [Unknown]
  - Acute myeloid leukaemia [Unknown]
  - Off label use [Unknown]
  - Mucosal haemorrhage [Unknown]
  - Oral mucosa haematoma [Unknown]
  - Pulmonary haemorrhage [Unknown]
  - Skin disorder [Unknown]
  - Renal failure [Unknown]
  - Thrombocytopenia [Unknown]
  - Haemoglobin decreased [Unknown]
